FAERS Safety Report 16233384 (Version 2)
Quarter: 2019Q4

REPORT INFORMATION
  Report Type: Spontaneous
  Country: JP (occurrence: JP)
  Receive Date: 20190424
  Receipt Date: 20191029
  Transmission Date: 20200122
  Serious: Yes (Hospitalization, Other)
  Sender: FDA-Public Use
  Company Number: JP-JNJFOC-20190430769

PATIENT
  Age: 64 Year
  Sex: Male
  Weight: 50 kg

DRUGS (1)
  1. IMBRUVICA [Suspect]
     Active Substance: IBRUTINIB
     Indication: CHRONIC LYMPHOCYTIC LEUKAEMIA
     Route: 048
     Dates: start: 20190227

REACTIONS (4)
  - Temporal lobe epilepsy [Unknown]
  - Posterior reversible encephalopathy syndrome [Recovering/Resolving]
  - Cholecystitis [Unknown]
  - Respiratory depression [Unknown]

NARRATIVE: CASE EVENT DATE: 2019
